FAERS Safety Report 9043214 (Version 1)
Quarter: 2013Q1

REPORT INFORMATION
  Report Type: Report from Study
  Country: US (occurrence: US)
  Receive Date: 20130129
  Receipt Date: 20130129
  Transmission Date: 20140127
  Serious: No
  Sender: FDA-Public Use
  Company Number: US-ABBOTT-12P-163-0913970-00

PATIENT
  Sex: Female
  Weight: 64.47 kg

DRUGS (7)
  1. HUMIRA 40 MG/0.8 ML PEN [Suspect]
     Indication: PSORIATIC ARTHROPATHY
     Route: 058
     Dates: start: 2010, end: 20111118
  2. HUMIRA 40 MG/0.8 ML PEN [Suspect]
     Indication: RHEUMATOID ARTHRITIS
  3. METHOTREXATE [Concomitant]
     Indication: RHEUMATOID ARTHRITIS
     Dosage: FOUR 2.5MG TABS WEEKLY
  4. METHOTREXATE [Concomitant]
     Indication: PSORIATIC ARTHROPATHY
  5. UNKNOWN MEDICATION [Concomitant]
     Indication: HYPERTENSION
  6. UNKNOWN MEDICATION [Concomitant]
     Indication: ANXIETY
  7. UNKNOWN MEDICATION [Concomitant]
     Indication: STRESS

REACTIONS (1)
  - Drug ineffective [Not Recovered/Not Resolved]
